FAERS Safety Report 21556883 (Version 4)
Quarter: 2023Q4

REPORT INFORMATION
  Report Type: Spontaneous
  Country: US (occurrence: US)
  Receive Date: 20221104
  Receipt Date: 20231002
  Transmission Date: 20240110
  Serious: No
  Sender: FDA-Public Use
  Company Number: US-KARYOPHARM-2022KPT001297

PATIENT

DRUGS (14)
  1. XPOVIO [Suspect]
     Active Substance: SELINEXOR
     Indication: Plasma cell myeloma
     Dosage: 80 MG, WEEKLY
     Route: 048
     Dates: start: 20221019, end: 2023
  2. XPOVIO [Suspect]
     Active Substance: SELINEXOR
     Dosage: 90 MG, WEEKLY
     Route: 048
     Dates: start: 2023, end: 20230728
  3. ACYCLOVIR [Concomitant]
     Active Substance: ACYCLOVIR
  4. DEXAMETHASONE [Concomitant]
     Active Substance: DEXAMETHASONE
  5. FLECAINIDE ACETATE [Concomitant]
     Active Substance: FLECAINIDE ACETATE
  6. K PHOS NEUTRAL [Concomitant]
     Active Substance: POTASSIUM PHOSPHATE, MONOBASIC\SODIUM PHOSPHATE, DIBASIC, ANHYDROUS\SODIUM PHOSPHATE, MONOBASIC, MON
  7. METOPROLOL [Concomitant]
     Active Substance: METOPROLOL
  8. OLANZAPINE [Concomitant]
     Active Substance: OLANZAPINE
  9. PROCHLORPERAZINE MALEATE [Concomitant]
     Active Substance: PROCHLORPERAZINE MALEATE
  10. ZOLEDRONIC ACID [Concomitant]
     Active Substance: ZOLEDRONIC ACID
  11. ASPIRIN [Concomitant]
     Active Substance: ASPIRIN
  12. VELCADE [Concomitant]
     Active Substance: BORTEZOMIB
  13. NINLARO [Concomitant]
     Active Substance: IXAZOMIB CITRATE
  14. POMALYST [Suspect]
     Active Substance: POMALIDOMIDE

REACTIONS (5)
  - Parosmia [Recovering/Resolving]
  - Plasma cell myeloma [Unknown]
  - Nausea [Not Recovered/Not Resolved]
  - Fatigue [Unknown]
  - Therapeutic product effect decreased [Unknown]

NARRATIVE: CASE EVENT DATE: 20220101
